FAERS Safety Report 11385488 (Version 1)
Quarter: 2015Q3

REPORT INFORMATION
  Report Type: Spontaneous
  Country: GB (occurrence: GB)
  Receive Date: 20150816
  Receipt Date: 20150816
  Transmission Date: 20151125
  Serious: Yes (Other)
  Sender: FDA-Public Use
  Company Number: PHHY2015GB098008

PATIENT
  Age: 47 Year
  Sex: Male

DRUGS (1)
  1. METOPROLOL [Suspect]
     Active Substance: METOPROLOL
     Indication: PRODUCT USED FOR UNKNOWN INDICATION
     Dosage: 50 MG, QD
     Route: 048
     Dates: start: 20150713

REACTIONS (5)
  - Agitation [Unknown]
  - Stress [Unknown]
  - Tachycardia [Unknown]
  - Product substitution issue [Unknown]
  - Insomnia [Unknown]

NARRATIVE: CASE EVENT DATE: 20150713
